FAERS Safety Report 10607552 (Version 1)
Quarter: 2014Q4

REPORT INFORMATION
  Report Type: Spontaneous
  Country: US (occurrence: None)
  Receive Date: 20141124
  Receipt Date: 20141124
  Transmission Date: 20150529
  Serious: Yes (Hospitalization)
  Sender: FDA-Public Use
  Company Number: None

PATIENT
  Age: 81 Year
  Sex: Female
  Weight: 52 kg

DRUGS (15)
  1. ATENOLOL. [Concomitant]
     Active Substance: ATENOLOL
  2. TRAVOPROST [Concomitant]
     Active Substance: TRAVOPROST
  3. NAPROXEN. [Suspect]
     Active Substance: NAPROXEN
     Indication: OSTEOARTHRITIS
     Dosage: 375MG, QPM PRN PAIN, PO
     Route: 048
  4. NAPROXEN. [Suspect]
     Active Substance: NAPROXEN
     Dosage: 375MG, QPM PRN PAIN, PO
     Route: 048
  5. MELATONIN [Concomitant]
     Active Substance: MELATONIN
  6. LEVOTHYROXINE [Concomitant]
     Active Substance: LEVOTHYROXINE
  7. PREVACID [Concomitant]
     Active Substance: LANSOPRAZOLE
  8. LISINOPRIL. [Concomitant]
     Active Substance: LISINOPRIL
  9. COUMADIN [Suspect]
     Active Substance: WARFARIN SODIUM
     Indication: ATRIAL FIBRILLATION
     Dosage: 5MG, TUES/THURS, PO
     Route: 048
  10. ZYRTEC [Concomitant]
     Active Substance: CETIRIZINE HYDROCHLORIDE
  11. SIMVASTATIN. [Concomitant]
     Active Substance: SIMVASTATIN
  12. COUMADIN [Suspect]
     Active Substance: WARFARIN SODIUM
     Dosage: 5MG, TUES/THURS, PO
     Route: 048
  13. DIGOXIN. [Concomitant]
     Active Substance: DIGOXIN
  14. VITAMIN D [Concomitant]
     Active Substance: CHOLECALCIFEROL
  15. AMLODIPINE [Concomitant]
     Active Substance: AMLODIPINE BESYLATE

REACTIONS (3)
  - International normalised ratio increased [None]
  - Haemorrhagic anaemia [None]
  - Faeces discoloured [None]

NARRATIVE: CASE EVENT DATE: 20140519
